FAERS Safety Report 4736405-9 (Version None)
Quarter: 2005Q3

REPORT INFORMATION
  Report Type: 
  Country: None (occurrence: None)
  Receive Date: 20050802
  Receipt Date: 20050719
  Transmission Date: 20060218
  Serious: Yes (Other)
  Sender: FDA-Public Use
  Company Number: DSA_26775_2005

PATIENT
  Age: 84 Year
  Sex: Female

DRUGS (4)
  1. ATIVAN [Suspect]
     Dosage: DF PO
     Route: 048
  2. MIANSERIN [Suspect]
  3. AMLODIPINE [Concomitant]
  4. ORAL ANTICOAGULANT [Concomitant]

REACTIONS (1)
  - GLAUCOMA [None]
